FAERS Safety Report 4312453-8 (Version None)
Quarter: 2004Q1

REPORT INFORMATION
  Report Type: 
  Country: None (occurrence: None)
  Receive Date: 20040305
  Receipt Date: 20040227
  Transmission Date: 20041129
  Serious: Yes (Hospitalization)
  Sender: FDA-Public Use
  Company Number: ES-ROCHE-360033

PATIENT
  Age: 51 Year
  Sex: Male

DRUGS (8)
  1. DACLIZUMAB [Suspect]
     Route: 042
  2. DACLIZUMAB [Suspect]
     Route: 042
     Dates: start: 20031120, end: 20040116
  3. MYCOPHENOLATE MOFETIL [Suspect]
     Route: 048
     Dates: start: 20031121
  4. TACROLIMUS [Suspect]
     Route: 048
     Dates: start: 20031122
  5. PREDNISONE [Suspect]
     Route: 048
     Dates: start: 20031122
  6. COTRIM [Concomitant]
     Route: 048
     Dates: start: 20031122
  7. OMEPRAZOLE [Concomitant]
     Route: 048
     Dates: start: 20031122
  8. FUROSEMIDE [Concomitant]
     Route: 048
     Dates: start: 20031122

REACTIONS (4)
  - ABDOMINAL PAIN [None]
  - CYTOMEGALOVIRUS INFECTION [None]
  - DIARRHOEA [None]
  - POSTOPERATIVE INFECTION [None]
